FAERS Safety Report 8817364 (Version 2)
Quarter: 2012Q4

REPORT INFORMATION
  Report Type: Report from Study
  Country: JP (occurrence: JP)
  Receive Date: 20121001
  Receipt Date: 20121029
  Transmission Date: 20130627
  Serious: Yes (Other)
  Sender: FDA-Public Use
  Company Number: JP-ASTELLAS-2011JP001215

PATIENT
  Age: 41 Year
  Sex: Female
  Weight: 63 kg

DRUGS (17)
  1. TACROLIMUS CAPSULES [Suspect]
     Indication: LUPUS NEPHRITIS
     Dosage: 3 mg, Unknown/D
     Route: 048
     Dates: start: 20080403
  2. PREDNISOLONE [Suspect]
     Indication: LUPUS NEPHRITIS
     Dosage: 10 mg, Unknown/D
     Route: 048
     Dates: end: 20090907
  3. PREDNISOLONE [Suspect]
     Dosage: 9 mg, Unknown/D
     Route: 048
     Dates: start: 20090908
  4. TAKEPRON [Concomitant]
     Indication: PROPHYLAXIS
     Dosage: 30 mg, Unknown/D
     Route: 048
  5. MUCOSTA [Concomitant]
     Indication: PROPHYLAXIS
     Dosage: 300 mg, Unknown/D
     Route: 048
  6. FOSAMAC [Concomitant]
     Indication: PROPHYLAXIS
     Dosage: 35 mg, Weekly
     Route: 048
  7. FOSAMAC [Concomitant]
     Dosage: 5 mg, Unknown/D
     Route: 048
  8. DEPAS [Concomitant]
     Indication: INSOMNIA
     Dosage: 0.5 mg, Unknown/D
     Route: 048
     Dates: start: 20090126, end: 20090525
  9. FLAVITAN [Concomitant]
     Indication: STOMATITIS
     Dosage: 30 mg, Unknown/D
     Route: 048
     Dates: start: 20090309, end: 20090709
  10. FLAVITAN [Concomitant]
     Indication: CHEILITIS
  11. TERNELIN [Concomitant]
     Indication: MUSCULOSKELETAL STIFFNESS
     Dosage: 3 mg, Unknown/D
     Route: 048
     Dates: start: 20090409
  12. TERNELIN [Concomitant]
     Indication: HEADACHE
     Dosage: 1 mg, Unknown/D
     Route: 048
     Dates: end: 20090525
  13. LOXONIN [Concomitant]
     Indication: ASTHMA
     Dosage: 60 mg, Unknown/D
     Route: 048
  14. LOXONIN [Concomitant]
     Indication: ARTHRITIS
  15. ADOAIR [Concomitant]
     Indication: ASTHMA
     Dosage: UNK
     Route: 055
     Dates: start: 20090525
  16. HOKUNALIN                          /00654901/ [Concomitant]
     Indication: ASTHMA
     Dosage: 1 mg, Unknown/D
     Route: 062
     Dates: start: 20090525
  17. CRAVIT [Concomitant]
     Indication: ARTHRITIS
     Dosage: 500 mg, Unknown/D
     Route: 048
     Dates: start: 20091204, end: 20091210

REACTIONS (8)
  - Arthritis [Recovering/Resolving]
  - Insomnia [Recovering/Resolving]
  - Stomatitis [Recovering/Resolving]
  - Cheilitis [Recovering/Resolving]
  - Musculoskeletal stiffness [Recovering/Resolving]
  - Headache [Recovering/Resolving]
  - Asthma [Not Recovered/Not Resolved]
  - Bronchitis [Recovered/Resolved]
